FAERS Safety Report 10296990 (Version 1)
Quarter: 2014Q3

REPORT INFORMATION
  Report Type: Spontaneous
  Country: US (occurrence: US)
  Receive Date: 20140711
  Receipt Date: 20140711
  Transmission Date: 20150326
  Serious: No
  Sender: FDA-Public Use
  Company Number: US-009507513-1407USA005328

PATIENT
  Sex: Male

DRUGS (1)
  1. REBETOL [Suspect]
     Active Substance: RIBAVIRIN

REACTIONS (2)
  - Headache [Unknown]
  - Dry skin [Unknown]
